FAERS Safety Report 11294060 (Version 2)
Quarter: 2015Q4

REPORT INFORMATION
  Report Type: Report from Study
  Country: US (occurrence: US)
  Receive Date: 20150722
  Receipt Date: 20151023
  Transmission Date: 20160304
  Serious: No
  Sender: FDA-Public Use
  Company Number: US-AMGEN-USASL2015063857

PATIENT
  Age: 56 Year
  Sex: Male

DRUGS (2)
  1. INSULIN [Concomitant]
     Active Substance: INSULIN NOS
     Dosage: UNK
  2. KYPROLIS [Suspect]
     Active Substance: CARFILZOMIB
     Indication: PLASMA CELL MYELOMA
     Dosage: UNK
     Route: 042
     Dates: start: 201506, end: 20150709

REACTIONS (9)
  - Abdominal discomfort [Recovering/Resolving]
  - Headache [Unknown]
  - Dysphagia [Recovering/Resolving]
  - Ear pain [Unknown]
  - Rash [Unknown]
  - Musculoskeletal pain [Unknown]
  - Back pain [Unknown]
  - Nausea [Recovered/Resolved]
  - Vomiting [Recovered/Resolved]

NARRATIVE: CASE EVENT DATE: 2015
